FAERS Safety Report 8853456 (Version 1)
Quarter: 2012Q4

REPORT INFORMATION
  Report Type: 
  Country: IT (occurrence: IT)
  Receive Date: 20121022
  Receipt Date: 20121022
  Transmission Date: 20130627
  Serious: Yes (Hospitalization)
  Sender: FDA-Public Use
  Company Number: IT-GLAXOSMITHKLINE-B0839358A

PATIENT
  Age: 82 Year
  Sex: Female

DRUGS (4)
  1. PROPAFENONE [Suspect]
     Indication: PALPITATIONS
     Dosage: 300MG As required
     Route: 048
     Dates: start: 20120401, end: 20120804
  2. SEQUACOR [Concomitant]
     Indication: PALPITATIONS
  3. LOSEC [Concomitant]
  4. ARIMIDEX [Concomitant]
     Indication: BREAST CANCER

REACTIONS (9)
  - Sweat gland disorder [Unknown]
  - Syncope [Unknown]
  - Vision blurred [Unknown]
  - Vomiting [Unknown]
  - Blood glucose abnormal [Unknown]
  - Nodal arrhythmia [Unknown]
  - Blood creatine phosphokinase increased [Unknown]
  - Myoglobin blood increased [Unknown]
  - C-reactive protein increased [Unknown]
